FAERS Safety Report 5745334-3 (Version None)
Quarter: 2008Q2

REPORT INFORMATION
  Report Type: 
  Country: None (occurrence: None)
  Receive Date: 20080521
  Receipt Date: 20080512
  Transmission Date: 20081010
  Serious: Yes (Hospitalization)
  Sender: FDA-Public Use
  Company Number: US-MERCK-0705USA02501

PATIENT
  Age: 38 Year
  Sex: Female

DRUGS (1)
  1. FOSAMAX [Suspect]
     Indication: OSTEOPOROSIS
     Route: 048
     Dates: start: 19970801, end: 20060101

REACTIONS (9)
  - ABSCESS [None]
  - DRUG EXPOSURE DURING PREGNANCY [None]
  - GINGIVAL BLEEDING [None]
  - GINGIVAL SWELLING [None]
  - SENSITIVITY OF TEETH [None]
  - TOOTH DEPOSIT [None]
  - TOOTH DISCOLOURATION [None]
  - TOOTH FRACTURE [None]
  - TOOTHACHE [None]
